FAERS Safety Report 10419388 (Version 2)
Quarter: 2014Q3

REPORT INFORMATION
  Report Type: Spontaneous
  Country: FR (occurrence: FR)
  Receive Date: 20140829
  Receipt Date: 20140925
  Transmission Date: 20150326
  Serious: Yes (Other)
  Sender: FDA-Public Use
  Company Number: FR-UCBSA-2014010034

PATIENT
  Age: 25 Year
  Sex: Female

DRUGS (1)
  1. KEPPRA [Suspect]
     Active Substance: LEVETIRACETAM
     Indication: EPILEPSY
     Dosage: 1000 MG, 2X/DAY (BID), IN THE MORNING AND IN THE EVENING-PROGRESSIVE INCREASE
     Route: 048
     Dates: start: 20131210

REACTIONS (2)
  - Viral infection [Unknown]
  - Vascular purpura [Recovering/Resolving]

NARRATIVE: CASE EVENT DATE: 201401
